APPROVED DRUG PRODUCT: CEFACLOR
Active Ingredient: CEFACLOR
Strength: EQ 500MG BASE
Dosage Form/Route: CAPSULE;ORAL
Application: A064145 | Product #002
Applicant: TEVA PHARMACEUTICALS USA INC
Approved: Jun 24, 1996 | RLD: No | RS: No | Type: DISCN